FAERS Safety Report 9161520 (Version 1)
Quarter: 2013Q1

REPORT INFORMATION
  Report Type: Spontaneous
  Country: BR (occurrence: BR)
  Receive Date: 20130313
  Receipt Date: 20130313
  Transmission Date: 20140127
  Serious: Yes (Hospitalization, Other)
  Sender: FDA-Public Use
  Company Number: BR-PFIZER INC-2013081388

PATIENT
  Age: 77 Year
  Sex: Female

DRUGS (4)
  1. FRONTAL [Suspect]
     Indication: SEDATIVE THERAPY
     Dosage: 0.25 MG, 1X/DAY (HALF OF .5MG TABLET)
     Dates: start: 2003
  2. ALDAZIDA [Concomitant]
     Indication: CEREBROVASCULAR ACCIDENT
     Dosage: UNK
     Dates: start: 2008
  3. DEPAKENE [Concomitant]
     Indication: CONVULSION
     Dosage: UNK
     Dates: start: 2008
  4. HIDANTAL [Concomitant]
     Indication: CONVULSION
     Dosage: UNK
     Dates: start: 2003

REACTIONS (5)
  - Ankle fracture [Unknown]
  - Arrhythmia [Unknown]
  - Hypertension [Unknown]
  - Urinary incontinence [Unknown]
  - Exostosis [Unknown]
